FAERS Safety Report 11712577 (Version 1)
Quarter: 2015Q4

REPORT INFORMATION
  Report Type: Spontaneous
  Country: US (occurrence: US)
  Receive Date: 20151104
  Receipt Date: 20151104
  Transmission Date: 20160304
  Serious: No
  Sender: FDA-Public Use
  Company Number: US-ELI_LILLY_AND_COMPANY-US201102006494

PATIENT
  Age: 91 Year
  Sex: Female

DRUGS (5)
  1. FORTEO [Suspect]
     Active Substance: TERIPARATIDE
     Dosage: 20 UG, DAILY (1/D)
     Route: 065
  2. OXYGEN. [Concomitant]
     Active Substance: OXYGEN
  3. FORTEO [Suspect]
     Active Substance: TERIPARATIDE
     Dosage: 20 UG, DAILY (1/D)
     Route: 065
  4. FORTEO [Suspect]
     Active Substance: TERIPARATIDE
     Indication: OSTEOPOROSIS
     Dosage: 20 UG, DAILY (1/D)
     Route: 065
     Dates: start: 20101228
  5. FORTEO [Suspect]
     Active Substance: TERIPARATIDE
     Dosage: 20 UG, QD
     Route: 065

REACTIONS (13)
  - Injection site pain [Unknown]
  - Syncope [Unknown]
  - Gait disturbance [Unknown]
  - Drug dose omission [Not Recovered/Not Resolved]
  - Oxygen supplementation [Unknown]
  - Somnolence [Unknown]
  - Fatigue [Unknown]
  - Pain in extremity [Unknown]
  - Dysphonia [Unknown]
  - Peripheral swelling [Unknown]
  - Burning sensation [Unknown]
  - Asthenia [Unknown]
  - Dizziness [Unknown]

NARRATIVE: CASE EVENT DATE: 20110502
